FAERS Safety Report 9157654 (Version 1)
Quarter: 2013Q1

REPORT INFORMATION
  Report Type: Report from Study
  Country: KR (occurrence: KR)
  Receive Date: 20130312
  Receipt Date: 20130312
  Transmission Date: 20140127
  Serious: Yes (Death)
  Sender: FDA-Public Use
  Company Number: KR-AMGEN-KORCT2013016900

PATIENT
  Age: 49 Year
  Sex: Male

DRUGS (2)
  1. DARBEPOETIN ALFA [Suspect]
     Indication: ANAEMIA
     Dosage: 60 MUG, UNK
     Route: 042
     Dates: start: 20120503, end: 20120623
  2. VENOFERRUM [Concomitant]
     Dosage: 5 ML, UNK
     Route: 042
     Dates: start: 20120609, end: 20120623

REACTIONS (2)
  - Hypercalcaemia [Fatal]
  - Cardiac arrest [Fatal]
